FAERS Safety Report 5398959-1 (Version None)
Quarter: 2007Q3

REPORT INFORMATION
  Report Type: 
  Country: None (occurrence: None)
  Receive Date: 20070724
  Receipt Date: 20070724
  Transmission Date: 20080115
  Serious: Yes (Hospitalization)
  Sender: FDA-Public Use
  Company Number: None

PATIENT
  Age: 63 Year
  Sex: Female

DRUGS (14)
  1. ZYVOX [Suspect]
     Dosage: 600 MG Q12 IV
     Route: 042
     Dates: start: 20060307, end: 20060311
  2. FLOVENT [Concomitant]
  3. PROTONIX [Concomitant]
  4. ALBUTEROL [Concomitant]
  5. NITROGLYCERIN [Concomitant]
  6. LANTUS [Concomitant]
  7. ATENOLOL [Concomitant]
  8. SYNTHROID [Concomitant]
  9. DARVOCET [Concomitant]
  10. ZOFRAN [Concomitant]
  11. KAYEXALATE XL [Concomitant]
  12. CIPROFLOXACIN [Concomitant]
  13. FLAGYL [Concomitant]
  14. LASIX [Concomitant]

REACTIONS (3)
  - BREAST CELLULITIS [None]
  - OEDEMA PERIPHERAL [None]
  - THROMBOCYTOPENIA [None]
